FAERS Safety Report 10840792 (Version 1)
Quarter: 2015Q1

REPORT INFORMATION
  Report Type: Spontaneous
  Country: IT (occurrence: None)
  Receive Date: 20150218
  Receipt Date: 20150218
  Transmission Date: 20150721
  Serious: Yes (Hospitalization)
  Sender: FDA-Public Use
  Company Number: FK201500759

PATIENT
  Age: 33 Year
  Sex: Female

DRUGS (12)
  1. DOCETAXEL (MANUFACTURER UNKNOWN) (DOCETAXEL) (DOCETAXEL) [Suspect]
     Active Substance: DOCETAXEL
     Indication: BLADDER CANCER
     Dosage: 75 MG/M2, CYCLICAL
     Dates: start: 20101201, end: 20110118
  2. CAPECITABINE (MANUFACTURER UNKNOWN) (CAPECITABINE) (CAPECITABINE) [Suspect]
     Active Substance: CAPECITABINE
     Indication: BLADDER CANCER
     Dosage: 2000 MG/M2, 1 IN 1 D
     Dates: start: 20091216, end: 20100303
  3. CAPECITABINE (MANUFACTURER UNKNOWN) (CAPECITABINE) (CAPECITABINE) [Suspect]
     Active Substance: CAPECITABINE
     Indication: METASTASES TO LUNG
     Dosage: 2000 MG/M2, 1 IN 1 D
     Dates: start: 20091216, end: 20100303
  4. DOCETAXEL (MANUFACTURER UNKNOWN) (DOCETAXEL) (DOCETAXEL) [Suspect]
     Active Substance: DOCETAXEL
     Indication: METASTASES TO LUNG
     Dosage: 75 MG/M2, CYCLICAL
     Dates: start: 20101201, end: 20110118
  5. IRINOTECAN (MANUFACTURER UNKNOWN) (IRINOTECAN) (IRINOTECAN) [Suspect]
     Active Substance: IRINOTECAN
     Indication: METASTASES TO LUNG
     Dosage: 180 MG/M2, 1 IN 2 WK
     Dates: start: 20091216, end: 20100303
  6. GRANULOCYTE COLONY-STIMULATING FACTOR NOS [Concomitant]
     Active Substance: GRANULOCYTE COLONY-STIMULATING FACTOR NOS
  7. OXALIPLATIN (MANUFACTURER UNKNOWN) (OXALIPLATIN) (OXALIPLATIN) [Suspect]
     Active Substance: OXALIPLATIN
     Indication: METASTASES TO LUNG
     Dosage: 85 MG/M2, 1 IN 2 WK
     Dates: start: 20091216, end: 20100303
  8. CISPLATIN. [Suspect]
     Active Substance: CISPLATIN
     Indication: BLADDER CANCER
     Dosage: 75 MG/M2, CYCLICAL ???
     Dates: start: 20101201, end: 20110118
  9. PEGFILGRASTIM (PEGFILGRASTIM) [Concomitant]
     Active Substance: PEGFILGRASTIM
  10. IRINOTECAN (MANUFACTURER UNKNOWN) (IRINOTECAN) (IRINOTECAN) [Suspect]
     Active Substance: IRINOTECAN
     Indication: BLADDER CANCER
     Dosage: 180 MG/M2, 1 IN 2 WK
     Dates: start: 20091216, end: 20100303
  11. CISPLATIN. [Suspect]
     Active Substance: CISPLATIN
     Indication: METASTASES TO LUNG
     Dosage: 75 MG/M2, CYCLICAL ???
     Dates: start: 20101201, end: 20110118
  12. OXALIPLATIN (MANUFACTURER UNKNOWN) (OXALIPLATIN) (OXALIPLATIN) [Suspect]
     Active Substance: OXALIPLATIN
     Indication: BLADDER CANCER
     Dosage: 85 MG/M2, 1 IN 2 WK
     Dates: start: 20091216, end: 20100303

REACTIONS (9)
  - Nausea [None]
  - Neutropenia [None]
  - Anaemia [None]
  - Metrorrhagia [None]
  - Malignant neoplasm progression [None]
  - Asthenia [None]
  - Intestinal obstruction [None]
  - Bladder cancer [None]
  - Abdominal pain [None]
